FAERS Safety Report 8720339 (Version 2)
Quarter: 2018Q3

REPORT INFORMATION
  Report Type: Spontaneous
  Country: FR (occurrence: FR)
  Receive Date: 20120813
  Receipt Date: 20180925
  Transmission Date: 20181010
  Serious: Yes (Hospitalization)
  Sender: FDA-Public Use
  Company Number: FR-ELI_LILLY_AND_COMPANY-FR201208001074

PATIENT
  Age: 68 Year
  Sex: Female
  Weight: 46 kg

DRUGS (17)
  1. COLECALCIFEROL [Concomitant]
     Active Substance: CHOLECALCIFEROL
  2. CORTANCYL [Concomitant]
     Active Substance: PREDNISONE
     Dosage: 2.5 MG, BID
     Dates: start: 20120215
  3. RALOXIFENE HYDROCHLORIDE. [Suspect]
     Active Substance: RALOXIFENE HYDROCHLORIDE
     Indication: PROPHYLAXIS
     Dosage: 60 MG, QD
     Dates: end: 20111206
  4. LEXOMIL [Concomitant]
     Active Substance: BROMAZEPAM
  5. BACTRIM [Concomitant]
     Active Substance: SULFAMETHOXAZOLE\TRIMETHOPRIM
  6. CALCIUM [Concomitant]
     Active Substance: CALCIUM
  7. CORTANCYL [Concomitant]
     Active Substance: PREDNISONE
     Dosage: 2.5 MG, TID
     Dates: start: 20120131, end: 20120214
  8. IXPRIM [Concomitant]
     Active Substance: ACETAMINOPHEN\TRAMADOL HYDROCHLORIDE
  9. INIPOMP [Concomitant]
     Active Substance: PANTOPRAZOLE SODIUM
  10. OPTRUMA [Suspect]
     Active Substance: RALOXIFENE HYDROCHLORIDE
     Indication: PROPHYLAXIS
     Dosage: 60 MG, QD
     Route: 048
     Dates: start: 20111206, end: 20120531
  11. ADANCOR [Concomitant]
     Active Substance: NICORANDIL
  12. PYOSTACINE [Concomitant]
     Active Substance: PRISTINAMYCIN
  13. CORTANCYL [Concomitant]
     Active Substance: PREDNISONE
     Dosage: 5 MG, TID
     Route: 048
     Dates: start: 20111206, end: 20120130
  14. RISPERDAL [Concomitant]
     Active Substance: RISPERIDONE
  15. DAFALGAN [Concomitant]
     Active Substance: ACETAMINOPHEN
  16. DUROGESIC [Concomitant]
     Active Substance: FENTANYL
  17. PREVISCAN                          /00789001/ [Concomitant]
     Active Substance: FLUINDIONE

REACTIONS (4)
  - Deep vein thrombosis [Recovered/Resolved]
  - Gait disturbance [Recovered/Resolved]
  - Rheumatoid arthritis [Recovered/Resolved]
  - Loss of personal independence in daily activities [Recovered/Resolved]

NARRATIVE: CASE EVENT DATE: 20120305
